FAERS Safety Report 5853534-7 (Version None)
Quarter: 2008Q3

REPORT INFORMATION
  Report Type: 
  Country: None (occurrence: None)
  Receive Date: 20080822
  Receipt Date: 20080811
  Transmission Date: 20090109
  Serious: Yes (Death)
  Sender: FDA-Public Use
  Company Number: US-JNJFOC-20080601079

PATIENT
  Sex: Female
  Weight: 48.08 kg

DRUGS (8)
  1. DURAGESIC-100 [Suspect]
     Indication: BACK PAIN
     Route: 062
  2. PROZAC [Concomitant]
     Indication: DEPRESSION
     Route: 048
  3. VITAMIN [Concomitant]
     Indication: VITAMIN SUPPLEMENTATION
     Route: 048
  4. CARISOPRODOL [Concomitant]
     Indication: MUSCLE RELAXANT THERAPY
     Route: 048
  5. ASPIRIN [Concomitant]
     Indication: DRUG USE FOR UNKNOWN INDICATION
     Route: 048
  6. DOCUSATE [Concomitant]
     Indication: DRUG USE FOR UNKNOWN INDICATION
     Route: 048
  7. PROTONIX [Concomitant]
     Indication: GASTRIC DISORDER
     Route: 048
  8. CALTRATE D [Concomitant]
     Route: 048

REACTIONS (1)
  - PNEUMONIA ASPIRATION [None]
